FAERS Safety Report 21845785 (Version 1)
Quarter: 2023Q1

REPORT INFORMATION
  Report Type: Report from Study
  Country: IN (occurrence: IN)
  Receive Date: 20230111
  Receipt Date: 20230111
  Transmission Date: 20230417
  Serious: Yes (Other)
  Sender: FDA-Public Use
  Company Number: IN-SUN PHARMACEUTICAL INDUSTRIES LTD-2022R1-372511

PATIENT
  Age: 63 Year
  Sex: Male

DRUGS (2)
  1. FOLIC ACID [Suspect]
     Active Substance: FOLIC ACID
     Indication: Colitis ulcerative
     Dosage: 1 MILLIGRAM, QD
     Route: 048
  2. SULFASALAZINE [Suspect]
     Active Substance: SULFASALAZINE
     Indication: Colitis ulcerative
     Dosage: 500 MILLIGRAM, BID
     Route: 048

REACTIONS (1)
  - Stevens-Johnson syndrome [Unknown]
